FAERS Safety Report 4575295-4 (Version None)
Quarter: 2005Q1

REPORT INFORMATION
  Report Type: 
  Country: None (occurrence: None)
  Receive Date: 20050127
  Receipt Date: 20050127
  Transmission Date: 20050727
  Serious: Yes (Hospitalization)
  Sender: FDA-Public Use
  Company Number: None

PATIENT
  Age: 38 Year
  Sex: Female
  Weight: 80.2867 kg

DRUGS (13)
  1. HERCEPTIN [Suspect]
     Indication: BREAST CANCER
     Dosage: 4 MG / KG IV
     Route: 042
     Dates: start: 20041015, end: 20050114
  2. PACLITAXEL [Suspect]
     Dosage: 80 MG/M2 IV
     Route: 042
     Dates: start: 20041015, end: 20050114
  3. CARBOPLATIN [Suspect]
     Indication: BREAST CANCER
     Dosage: AUC 6 IV
     Route: 042
     Dates: start: 20041015, end: 20050114
  4. ZOFRAN [Concomitant]
  5. DECADRON [Concomitant]
  6. PREVACID [Concomitant]
  7. NAPROXEN [Concomitant]
  8. GELELAIR GEL [Concomitant]
  9. AVELOX [Concomitant]
  10. PREDNISONE [Concomitant]
  11. ALBUTEROL [Concomitant]
  12. NYSTATIA-TRIAMCINOLONE [Concomitant]
  13. PERCOCET [Concomitant]

REACTIONS (13)
  - BRONCHITIS [None]
  - FEELING HOT [None]
  - HEADACHE [None]
  - HYPOAESTHESIA [None]
  - INFECTION [None]
  - NECK PAIN [None]
  - PAIN [None]
  - PAIN IN EXTREMITY [None]
  - PARAESTHESIA [None]
  - PRODUCTIVE COUGH [None]
  - RASH MACULAR [None]
  - SLEEP DISORDER DUE TO GENERAL MEDICAL CONDITION, INSOMNIA TYPE [None]
  - SPUTUM DISCOLOURED [None]
